FAERS Safety Report 4444018-1 (Version None)
Quarter: 2004Q3

REPORT INFORMATION
  Report Type: 
  Country: None (occurrence: None)
  Receive Date: 20040729
  Receipt Date: 20031114
  Transmission Date: 20050211
  Serious: Yes (Other)
  Sender: FDA-Public Use
  Company Number: US-JNJFOC-20031103131

PATIENT
  Age: 22 Year
  Sex: Male

DRUGS (2)
  1. RISPERDAL [Suspect]
     Indication: BIPOLAR DISORDER
     Dosage: 0.5 MG, 1 IN 1 DAY, ORAL;  1 MG, 1 IN 1 DAY, ORAL
     Route: 048
     Dates: start: 20031101, end: 20031101
  2. RISPERDAL [Suspect]
     Indication: BIPOLAR DISORDER
     Dosage: 0.5 MG, 1 IN 1 DAY, ORAL;  1 MG, 1 IN 1 DAY, ORAL
     Route: 048
     Dates: start: 20031101, end: 20031101

REACTIONS (1)
  - BLOOD GLUCOSE INCREASED [None]
